FAERS Safety Report 21967284 (Version 1)
Quarter: 2023Q1

REPORT INFORMATION
  Report Type: Spontaneous
  Country: CN (occurrence: CN)
  Receive Date: 20230208
  Receipt Date: 20230208
  Transmission Date: 20230418
  Serious: Yes (Other)
  Sender: FDA-Public Use
  Company Number: CN-009507513-2302CHN000512

PATIENT
  Age: 51 Year
  Sex: Female
  Weight: 49 kg

DRUGS (4)
  1. CILASTATIN SODIUM\IMIPENEM [Suspect]
     Active Substance: CILASTATIN SODIUM\IMIPENEM
     Indication: Postoperative wound infection
     Dosage: 1G, Q6H
     Route: 042
     Dates: start: 20230112, end: 20230113
  2. CILASTATIN SODIUM\IMIPENEM [Suspect]
     Active Substance: CILASTATIN SODIUM\IMIPENEM
     Dosage: 0.5G, Q6H
     Route: 041
     Dates: start: 202301
  3. TIGECYCLINE [Suspect]
     Active Substance: TIGECYCLINE
     Indication: Postoperative wound infection
     Dosage: 100 MG, Q12H
     Route: 042
     Dates: start: 20230112, end: 20230114
  4. TIGECYCLINE [Suspect]
     Active Substance: TIGECYCLINE
     Dosage: 50MG, Q12H
     Route: 041
     Dates: start: 202301, end: 20230115

REACTIONS (3)
  - Pathogen resistance [Unknown]
  - Nausea [Recovering/Resolving]
  - Vomiting [Recovering/Resolving]

NARRATIVE: CASE EVENT DATE: 20230101
